FAERS Safety Report 21742361 (Version 1)
Quarter: 2022Q4

REPORT INFORMATION
  Report Type: Spontaneous
  Country: HR (occurrence: HR)
  Receive Date: 20221216
  Receipt Date: 20221216
  Transmission Date: 20230113
  Serious: Yes (Hospitalization)
  Sender: FDA-Public Use
  Company Number: HR-BIOGEN-2022BI01175993

PATIENT
  Age: 49 Year
  Sex: Female

DRUGS (3)
  1. TECFIDERA [Suspect]
     Active Substance: DIMETHYL FUMARATE
     Indication: Multiple sclerosis
     Route: 050
     Dates: start: 201805
  2. PERTUZUMAB [Concomitant]
     Active Substance: PERTUZUMAB
     Indication: Product used for unknown indication
     Route: 050
  3. TRASTUZUMAB [Concomitant]
     Active Substance: TRASTUZUMAB
     Indication: Product used for unknown indication
     Route: 050

REACTIONS (1)
  - Brown-Sequard syndrome [Unknown]

NARRATIVE: CASE EVENT DATE: 20221209
